FAERS Safety Report 7824376-8 (Version None)
Quarter: 2011Q4

REPORT INFORMATION
  Report Type: 
  Country: None (occurrence: None)
  Receive Date: 20111018
  Receipt Date: 20111018
  Transmission Date: 20120403
  Serious: Yes (Life-Threatening, Hospitalization, Disabling, Other)
  Sender: FDA-Public Use
  Company Number: None

PATIENT
  Age: 76 Year
  Sex: Male
  Weight: 118.8424 kg

DRUGS (1)
  1. PACERONE [Suspect]
     Indication: ATRIAL FIBRILLATION
     Dosage: 400 MG 3 TIMES A DAY PILLS ORALLY
     Route: 048
     Dates: start: 20110525, end: 20110602

REACTIONS (4)
  - BLADDER CANCER [None]
  - DRUG INEFFECTIVE [None]
  - RESPIRATORY DISTRESS [None]
  - GYNAECOMASTIA [None]
